FAERS Safety Report 5471372-4 (Version None)
Quarter: 2007Q3

REPORT INFORMATION
  Report Type: 
  Country: None (occurrence: None)
  Receive Date: 20070928
  Receipt Date: 20061108
  Transmission Date: 20080115
  Serious: Yes (Disabling)
  Sender: FDA-Public Use
  Company Number: US-BRISTOL-MYERS SQUIBB COMPANY-13507041

PATIENT
  Age: 59 Year
  Sex: Female

DRUGS (11)
  1. DEFINITY [Suspect]
     Indication: THROMBOSIS
     Route: 042
     Dates: start: 20060310, end: 20060310
  2. LIPITOR [Concomitant]
  3. ALDACTONE [Concomitant]
  4. COUMADIN [Concomitant]
  5. AVAPRO [Concomitant]
  6. COREG [Concomitant]
  7. AMIODARONE HCL [Concomitant]
  8. K-DUR 10 [Concomitant]
  9. LASIX [Concomitant]
  10. ASPIRIN [Concomitant]
  11. NITROGLYCERIN [Concomitant]

REACTIONS (2)
  - ARTHRALGIA [None]
  - PAIN IN EXTREMITY [None]
